FAERS Safety Report 7270325-3 (Version None)
Quarter: 2011Q1

REPORT INFORMATION
  Report Type: 
  Country: None (occurrence: None)
  Receive Date: 20110202
  Receipt Date: 20101217
  Transmission Date: 20110831
  Serious: Yes (Other)
  Sender: FDA-Public Use
  Company Number: US-BAYER-201013357NA

PATIENT
  Sex: Female
  Weight: 73 kg

DRUGS (38)
  1. IBUPROFEN [Concomitant]
     Indication: MIGRAINE
     Dates: start: 20080101
  2. ZYRTEC [Concomitant]
     Indication: HYPERSENSITIVITY
  3. ADVAIR [Concomitant]
     Indication: ASTHMA
     Dates: start: 19900101
  4. PLAQUENIL [Concomitant]
     Indication: SYSTEMIC LUPUS ERYTHEMATOSUS
     Dates: start: 20060101
  5. LORATADINE [Concomitant]
     Indication: SEASONAL ALLERGY
     Dates: start: 20000101, end: 20000101
  6. CHROMIUM CHLORIDE [Concomitant]
  7. YASMIN [Suspect]
     Indication: PREMENSTRUAL SYNDROME
     Route: 048
     Dates: start: 20030514, end: 20061001
  8. MOTRIN [Concomitant]
     Indication: MIGRAINE
     Dates: start: 20080101
  9. LEVAQUIN [Concomitant]
  10. PHENTERMINE [Concomitant]
     Indication: WEIGHT DECREASED
     Dates: start: 20090101
  11. WOMENS ULTRA MEGA [Concomitant]
  12. FLAXSEED OIL [Concomitant]
  13. YAZ [Suspect]
     Indication: PREMENSTRUAL SYNDROME
     Route: 048
     Dates: start: 20061101, end: 20080401
  14. AMBIEN [Concomitant]
     Indication: SLEEP DISORDER
     Dates: start: 20080101
  15. ROZEREM [Concomitant]
     Indication: MYOCARDIAL ISCHAEMIA
     Dates: start: 20080101
  16. ZYRTEC [Concomitant]
     Indication: SLEEP DISORDER
     Dates: start: 20080101
  17. FLONASE [Concomitant]
     Indication: HYPERSENSITIVITY
  18. ALBUTEROL [Concomitant]
     Indication: ASTHMA
     Dates: start: 19900101
  19. AMITRIPTYLINE HCL [Concomitant]
     Indication: SLEEP DISORDER
     Dates: start: 20080101
  20. ESTER C [Concomitant]
  21. MAGNESIUM [Concomitant]
  22. LIPITAC [Concomitant]
  23. UNCODEABLE ^UNCLASSIFIABLE^ [Concomitant]
     Indication: PRODUCT USED FOR UNKNOWN INDICATION
  24. ZINC [Concomitant]
  25. CLARINEX [Concomitant]
     Indication: HYPERSENSITIVITY
  26. YASMIN [Suspect]
     Indication: MENOPAUSE
  27. LUNESTA [Concomitant]
     Indication: SLEEP DISORDER
     Dates: start: 20080101
  28. IRON [Concomitant]
  29. LOVAZA [Concomitant]
  30. TPN [Concomitant]
  31. COENZYME Q10 [Concomitant]
  32. YAZ [Suspect]
     Indication: MENOPAUSE
  33. SINGULAIR [Concomitant]
     Indication: ASTHMA
     Dates: start: 19900101
  34. TEMAZEPAM [Concomitant]
     Indication: ASTHMA
  35. MERIDIA [Concomitant]
     Indication: WEIGHT DECREASED
     Dates: start: 20030327, end: 20090504
  36. CALCIUM [Concomitant]
  37. VITAMIN D [Concomitant]
  38. EVENING PRIMROSE OIL [Concomitant]

REACTIONS (6)
  - MUSCULAR WEAKNESS [None]
  - LISTLESS [None]
  - CEREBROVASCULAR ACCIDENT [None]
  - HEADACHE [None]
  - HEMICEPHALALGIA [None]
  - ABDOMINAL DISTENSION [None]
